FAERS Safety Report 10028400 (Version 1)
Quarter: 2014Q1

REPORT INFORMATION
  Report Type: Report from Study
  Country: US (occurrence: US)
  Receive Date: 20140321
  Receipt Date: 20140321
  Transmission Date: 20141002
  Serious: Yes (Hospitalization)
  Sender: FDA-Public Use
  Company Number: US-SA-2014SA032682

PATIENT
  Age: 63 Year
  Sex: Female
  Weight: 98.7 kg

DRUGS (11)
  1. LANTUS [Suspect]
     Indication: DIABETES MELLITUS
     Route: 065
     Dates: start: 20130303
  2. METFORMIN [Suspect]
     Indication: DIABETES MELLITUS
     Route: 065
     Dates: start: 20130303
  3. INSULIN GLARGINE [Concomitant]
     Dates: start: 20130703
  4. METFORMIN [Concomitant]
     Dates: start: 20130703
  5. INSULIN ASPART [Concomitant]
     Dates: start: 20130703
  6. HMG COA REDUCTASE INHIBITORS [Concomitant]
  7. BETA BLOCKING AGENTS [Concomitant]
  8. ACE INHIBITOR NOS [Concomitant]
  9. NSAID^S [Concomitant]
  10. ASA [Concomitant]
  11. ANTIDEPRESSANTS [Concomitant]

REACTIONS (3)
  - Cervical spinal stenosis [Recovered/Resolved]
  - Asthenia [Recovered/Resolved]
  - Muscle atrophy [Recovered/Resolved]
